FAERS Safety Report 11405874 (Version 2)
Quarter: 2015Q4

REPORT INFORMATION
  Report Type: Spontaneous
  Country: JP (occurrence: JP)
  Receive Date: 20150821
  Receipt Date: 20151002
  Transmission Date: 20160304
  Serious: Yes (Hospitalization, Other)
  Sender: FDA-Public Use
  Company Number: JP-GILEAD-2015-0167302

PATIENT
  Age: 56 Year
  Sex: Male
  Weight: 67.9 kg

DRUGS (5)
  1. SOVALDI [Suspect]
     Active Substance: SOFOSBUVIR
     Indication: HEPATIC CIRRHOSIS
     Dosage: 400 MG, QD
     Route: 048
     Dates: start: 20150810
  2. COPEGUS [Suspect]
     Active Substance: RIBAVIRIN
     Indication: CHRONIC HEPATITIS C
     Dosage: 600 MG, QD
     Route: 048
     Dates: start: 20150626, end: 20150808
  3. SOVALDI [Suspect]
     Active Substance: SOFOSBUVIR
     Indication: CHRONIC HEPATITIS C
     Dosage: 400 MG, QD
     Route: 048
     Dates: start: 20150626, end: 20150808
  4. COPEGUS [Suspect]
     Active Substance: RIBAVIRIN
     Indication: HEPATIC CIRRHOSIS
     Dosage: 600 MG, QD
     Route: 048
     Dates: start: 20150810
  5. JANUVIA [Concomitant]
     Active Substance: SITAGLIPTIN PHOSPHATE
     Indication: DIABETES MELLITUS
     Dosage: 50 MG, QD
     Route: 048
     Dates: start: 20150814

REACTIONS (5)
  - Inborn error of bilirubin metabolism [Recovering/Resolving]
  - Blood bilirubin unconjugated increased [Recovering/Resolving]
  - Haematemesis [Recovered/Resolved]
  - Gastric varices haemorrhage [Recovered/Resolved]
  - Haemoglobin decreased [Recovered/Resolved]

NARRATIVE: CASE EVENT DATE: 20150717
